FAERS Safety Report 12807445 (Version 1)
Quarter: 2016Q4

REPORT INFORMATION
  Report Type: Spontaneous
  Country: US (occurrence: US)
  Receive Date: 20161004
  Receipt Date: 20161004
  Transmission Date: 20170207
  Serious: No
  Sender: FDA-Public Use
  Company Number: US-009507513-1609USA005478

PATIENT
  Age: 36 Year
  Sex: Female

DRUGS (1)
  1. NEXPLANON [Suspect]
     Active Substance: ETONOGESTREL
     Indication: CONTRACEPTION
     Dosage: UNK, FREQUENCY 3 YEARS
     Route: 059
     Dates: start: 20150330, end: 20150630

REACTIONS (3)
  - Hormone level abnormal [Recovered/Resolved]
  - Seborrhoea [Recovered/Resolved]
  - Mood swings [Recovered/Resolved]

NARRATIVE: CASE EVENT DATE: 2015
